FAERS Safety Report 7441547-3 (Version None)
Quarter: 2011Q2

REPORT INFORMATION
  Report Type: 
  Country: None (occurrence: None)
  Receive Date: 20110428
  Receipt Date: 20110418
  Transmission Date: 20111010
  Serious: Yes (Hospitalization, Other)
  Sender: FDA-Public Use
  Company Number: US-JNJFOC-20110408508

PATIENT
  Sex: Female
  Weight: 76.2 kg

DRUGS (2)
  1. DURAGESIC [Suspect]
     Indication: PAIN
     Route: 062
  2. DURAGESIC [Suspect]
     Route: 062

REACTIONS (5)
  - FOOT DEFORMITY [None]
  - BUNION [None]
  - PAIN [None]
  - PRODUCT QUALITY ISSUE [None]
  - MUSCULOSKELETAL PAIN [None]
